FAERS Safety Report 5699836-9 (Version None)
Quarter: 2008Q2

REPORT INFORMATION
  Report Type: 
  Country: None (occurrence: None)
  Receive Date: 20080410
  Receipt Date: 20080312
  Transmission Date: 20081010
  Serious: No
  Sender: FDA-Public Use
  Company Number: US-BOEHRINGER INGELHEIM GMBH, GERMANY-2008-BP-03034BP

PATIENT
  Age: 64 Year
  Sex: Male
  Weight: 71 kg

DRUGS (3)
  1. SPIRIVA [Suspect]
     Route: 055
     Dates: end: 20080210
  2. ADVAIR HFA [Concomitant]
     Dates: start: 20070804
  3. SINGULAIR [Concomitant]
     Dates: start: 20071010

REACTIONS (1)
  - URINARY RETENTION [None]
